FAERS Safety Report 5498804-X (Version None)
Quarter: 2007Q4

REPORT INFORMATION
  Report Type: 
  Country: None (occurrence: None)
  Receive Date: 20071026
  Receipt Date: 20070720
  Transmission Date: 20080405
  Serious: No
  Sender: FDA-Public Use
  Company Number: A0665368A

PATIENT
  Age: 84 Year
  Sex: Male

DRUGS (5)
  1. ADVAIR DISKUS 100/50 [Suspect]
     Indication: ASTHMA
     Dosage: 1PUFF TWICE PER DAY
     Route: 055
  2. NORVASC [Suspect]
     Indication: DRUG USE FOR UNKNOWN INDICATION
     Dosage: 5MG UNKNOWN
     Route: 065
  3. METOPROLOL [Concomitant]
     Dosage: 12.5MG TWICE PER DAY
  4. ALBUTEROL [Concomitant]
  5. SIMVASTATIN [Concomitant]
     Dosage: 40MG PER DAY

REACTIONS (1)
  - ONYCHOCLASIS [None]
